FAERS Safety Report 23570633 (Version 1)
Quarter: 2024Q1

REPORT INFORMATION
  Report Type: Report from Study
  Country: AR (occurrence: AR)
  Receive Date: 20240227
  Receipt Date: 20240227
  Transmission Date: 20240410
  Serious: Yes (Other)
  Sender: FDA-Public Use
  Company Number: AR-002147023-NVSC2023AR178208

PATIENT
  Age: 18 Year
  Sex: Female

DRUGS (1)
  1. COSENTYX [Suspect]
     Active Substance: SECUKINUMAB
     Indication: Psoriasis
     Dosage: 300 MG, QMO
     Route: 058
     Dates: start: 20230713

REACTIONS (11)
  - Colitis [Unknown]
  - Dengue fever [Recovered/Resolved]
  - Chills [Unknown]
  - Pyrexia [Unknown]
  - Psoriasis [Unknown]
  - Nausea [Unknown]
  - Nervousness [Unknown]
  - Pain [Unknown]
  - Blister [Unknown]
  - Gait disturbance [Unknown]
  - Hypersensitivity [Unknown]

NARRATIVE: CASE EVENT DATE: 20230731
